FAERS Safety Report 7544468-0 (Version None)
Quarter: 2011Q2

REPORT INFORMATION
  Report Type: 
  Country: None (occurrence: None)
  Receive Date: 20110613
  Receipt Date: 20100609
  Transmission Date: 20111010
  Serious: Yes (Death)
  Sender: FDA-Public Use
  Company Number: PHHO2006KR10320

PATIENT
  Sex: Female
  Weight: 49 kg

DRUGS (2)
  1. NOLVADEX [Concomitant]
     Dosage: 20 MG, DAILY
     Dates: start: 20030620, end: 20040929
  2. ZOMETA [Suspect]
     Indication: METASTASES TO BONE
     Dosage: 4 MG, UNK
     Route: 042
     Dates: start: 20040429

REACTIONS (1)
  - COMPLETED SUICIDE [None]
